FAERS Safety Report 19740589 (Version 1)
Quarter: 2021Q3

REPORT INFORMATION
  Report Type: Report from Study
  Country: US (occurrence: US)
  Receive Date: 20210824
  Receipt Date: 20210824
  Transmission Date: 20211014
  Serious: Yes (Death, Other)
  Sender: FDA-Public Use
  Company Number: US-PFIZER INC-2021405899

PATIENT
  Age: 81 Year
  Sex: Female

DRUGS (4)
  1. IBRANCE [Suspect]
     Active Substance: PALBOCICLIB
     Dosage: 100 MG, CYCLIC (DAILY FOR 21 DAYS ON AND 7 DAYS OFF)
     Route: 048
     Dates: start: 20210427
  2. FASLODEX [Concomitant]
     Active Substance: FULVESTRANT
     Dosage: UNK
     Route: 030
  3. IBRANCE [Suspect]
     Active Substance: PALBOCICLIB
     Indication: BREAST CANCER FEMALE
     Dosage: 125 MG, CYCLIC (DAILY FOR 21 DAYS ON AND 7 DAYS OFF)
     Route: 048
     Dates: start: 20210328
  4. IBRANCE [Suspect]
     Active Substance: PALBOCICLIB
     Dosage: 100 MG, CYCLIC (DAILY FOR 21 DAYS ON AND 7 DAYS OFF)
     Route: 048
     Dates: start: 20210328, end: 202108

REACTIONS (11)
  - Constipation [Unknown]
  - Pain of skin [Unknown]
  - Red blood cell count decreased [Unknown]
  - Fatigue [Unknown]
  - Blood glucose increased [Unknown]
  - Oral candidiasis [Unknown]
  - Alopecia [Unknown]
  - Death [Fatal]
  - Decreased appetite [Unknown]
  - Faeces discoloured [Unknown]
  - Feeling cold [Unknown]

NARRATIVE: CASE EVENT DATE: 2021
